FAERS Safety Report 23765475 (Version 1)
Quarter: 2024Q2

REPORT INFORMATION
  Report Type: Spontaneous
  Country: US (occurrence: US)
  Receive Date: 20240420
  Receipt Date: 20240420
  Transmission Date: 20240716
  Serious: Yes (Death, Other)
  Sender: FDA-Public Use
  Company Number: US-AMGEN-USASP2024073121

PATIENT
  Age: 54 Year
  Sex: Female

DRUGS (8)
  1. TRASTUZUMAB [Suspect]
     Active Substance: TRASTUZUMAB
     Indication: HER2 positive breast cancer
     Dosage: EVERY THREE WEEKS
     Route: 065
  2. TRASTUZUMAB [Suspect]
     Active Substance: TRASTUZUMAB
     Dosage: UNK
     Route: 065
  3. TUCATINIB [Concomitant]
     Active Substance: TUCATINIB
     Indication: HER2 positive breast cancer
     Dosage: 300 MILLIGRAM, BID
     Route: 065
  4. TUCATINIB [Concomitant]
     Active Substance: TUCATINIB
     Dosage: UNK
     Route: 065
  5. CAPECITABINE [Concomitant]
     Active Substance: CAPECITABINE
     Indication: HER2 positive breast cancer
     Dosage: UNK
     Route: 065
  6. CAPECITABINE [Concomitant]
     Active Substance: CAPECITABINE
     Dosage: UNK
     Route: 065
  7. TRASTUZUMAB DERUXTECAN [Concomitant]
     Active Substance: TRASTUZUMAB DERUXTECAN
     Indication: HER2 positive breast cancer
     Dosage: UNK
     Route: 065
  8. PEMBROLIZUMAB [Concomitant]
     Active Substance: PEMBROLIZUMAB
     Indication: HER2 positive breast cancer
     Dosage: UNK
     Route: 065

REACTIONS (5)
  - Death [Fatal]
  - Breast cancer metastatic [Unknown]
  - Feeling cold [Unknown]
  - Chills [Unknown]
  - Hypotension [Unknown]
